FAERS Safety Report 18217653 (Version 1)
Quarter: 2020Q3

REPORT INFORMATION
  Report Type: Spontaneous
  Country: US (occurrence: US)
  Receive Date: 20200901
  Receipt Date: 20200901
  Transmission Date: 20201103
  Serious: Yes (Hospitalization)
  Sender: FDA-Public Use
  Company Number: US-MYLANLABS-2020M1075413

PATIENT
  Age: 66 Year
  Sex: Male

DRUGS (12)
  1. ENZALUTAMIDE [Concomitant]
     Active Substance: ENZALUTAMIDE
     Indication: HORMONE-REFRACTORY PROSTATE CANCER
  2. SIMVASTATIN. [Interacting]
     Active Substance: SIMVASTATIN
     Dosage: SIMVASTATIN 20 MG DAILY FOR MILD HYPERLIPIDEMIA (PATIENT REDUCED DOSE TO 20 MG 3 YEARS PRIOR)
     Route: 065
  3. TAXOTERE [Concomitant]
     Active Substance: DOCETAXEL
     Indication: HORMONE-REFRACTORY PROSTATE CANCER
  4. METOPROLOL. [Concomitant]
     Active Substance: METOPROLOL
     Indication: HYPERTENSION
     Dosage: 25 MILLIGRAM, METOPROLOL 25 MG BID (TWICE A DAY) FOR HYPERTENSION (STARTED 3 YEARS PRIOR)
     Route: 065
  5. AMLODIPINE [Interacting]
     Active Substance: AMLODIPINE BESYLATE
     Indication: HYPERTENSION
     Dosage: AMLODIPINE 5 MG DAILY FOR HYPERTENSION
     Route: 065
  6. PREDNISONE. [Concomitant]
     Active Substance: PREDNISONE
     Indication: HORMONE-REFRACTORY PROSTATE CANCER
  7. ZYTIGA [Interacting]
     Active Substance: ABIRATERONE ACETATE
     Indication: PROSTATE CANCER METASTATIC
     Dosage: 1000 MILLIGRAM, STARTED ON ABIRATERONE ACETATE FOR METASTATIC..
     Route: 065
  8. PREDNISONE. [Concomitant]
     Active Substance: PREDNISONE
     Indication: PROSTATE CANCER METASTATIC
     Dosage: 5 MILLIGRAM, QD, STARTED ON LOW?DOSE PREDNISONE FOR METASTATIC...
     Route: 065
  9. TAXOTERE [Concomitant]
     Active Substance: DOCETAXEL
     Indication: PROSTATE CANCER METASTATIC
     Dosage: UNK, HE WAS INITIATED ON DOCETAXEL [TAXOTERE] FOR METASTATIC...
     Route: 065
  10. SIMVASTATIN. [Suspect]
     Active Substance: SIMVASTATIN
     Indication: HYPERLIPIDAEMIA
     Dosage: STARTED SIMVASTATIN 40 MG DAILY FOR MILD HYPERLIPIDEMIA 6?7 YEARS PRIOR...
     Route: 065
  11. ENZALUTAMIDE [Concomitant]
     Active Substance: ENZALUTAMIDE
     Indication: PROSTATE CANCER METASTATIC
     Dosage: THE PATIENT HAD PROGRESSED ON ENZALUTAMIDE, WHICH WAS STARTED...
     Route: 065
  12. ZYTIGA [Interacting]
     Active Substance: ABIRATERONE ACETATE
     Indication: HORMONE-REFRACTORY PROSTATE CANCER

REACTIONS (2)
  - Rhabdomyolysis [Recovered/Resolved]
  - Drug interaction [Recovered/Resolved]
